FAERS Safety Report 18895575 (Version 1)
Quarter: 2021Q1

REPORT INFORMATION
  Report Type: Spontaneous
  Country: DE (occurrence: DE)
  Receive Date: 20210216
  Receipt Date: 20210216
  Transmission Date: 20210420
  Serious: Yes (Other)
  Sender: FDA-Public Use
  Company Number: DE-TEVA-2021-DE-1880964

PATIENT
  Age: 22 Year
  Sex: Male
  Weight: 94 kg

DRUGS (1)
  1. AZITHROMYCIN ABZ 500MG FILMTABLETTEN [Suspect]
     Active Substance: AZITHROMYCIN DIHYDRATE
     Dosage: 3 TABLETS ONE TIME
     Dates: start: 202101, end: 202101

REACTIONS (1)
  - Erectile dysfunction [Not Recovered/Not Resolved]

NARRATIVE: CASE EVENT DATE: 202101
